FAERS Safety Report 22989321 (Version 18)
Quarter: 2025Q3

REPORT INFORMATION
  Report Type: Spontaneous
  Country: CA (occurrence: CA)
  Receive Date: 20230927
  Receipt Date: 20250922
  Transmission Date: 20251020
  Serious: Yes (Death, Life-Threatening, Hospitalization, Disabling, Other)
  Sender: SANDOZ
  Company Number: CA-ASPP-GLO2021CA002597

PATIENT
  Age: 65 Year
  Sex: Male
  Weight: 79 kg

DRUGS (655)
  1. ALENDRONATE SODIUM [Suspect]
     Active Substance: ALENDRONATE SODIUM
     Indication: Product used for unknown indication
     Dosage: 1 DF, QW
     Route: 065
  2. ALENDRONATE SODIUM [Suspect]
     Active Substance: ALENDRONATE SODIUM
     Dosage: 1 DF, QW
     Route: 065
  3. ALENDRONATE SODIUM [Suspect]
     Active Substance: ALENDRONATE SODIUM
     Dosage: 1 DF, QW
     Route: 065
  4. ALENDRONATE SODIUM [Suspect]
     Active Substance: ALENDRONATE SODIUM
     Dosage: 1 DF, QW
     Route: 065
  5. ALENDRONATE SODIUM [Suspect]
     Active Substance: ALENDRONATE SODIUM
     Dosage: 1 DF, QD
     Route: 065
  6. ALENDRONATE SODIUM [Suspect]
     Active Substance: ALENDRONATE SODIUM
     Route: 065
  7. ALENDRONATE SODIUM [Suspect]
     Active Substance: ALENDRONATE SODIUM
     Route: 065
  8. ALENDRONATE SODIUM [Suspect]
     Active Substance: ALENDRONATE SODIUM
     Route: 065
  9. ALENDRONATE SODIUM [Suspect]
     Active Substance: ALENDRONATE SODIUM
     Dosage: 100 MG, QD
     Route: 065
  10. ALENDRONATE SODIUM [Suspect]
     Active Substance: ALENDRONATE SODIUM
     Dosage: 100 MG, QD
     Route: 065
  11. ALENDRONATE SODIUM [Suspect]
     Active Substance: ALENDRONATE SODIUM
     Dosage: 70 MG, QW
     Route: 065
  12. ALENDRONATE SODIUM [Suspect]
     Active Substance: ALENDRONATE SODIUM
     Dosage: 70 MG, QW
     Route: 065
  13. ALENDRONATE SODIUM [Suspect]
     Active Substance: ALENDRONATE SODIUM
     Dosage: 70 MG, QW (1 DF)
     Route: 065
  14. ALENDRONATE SODIUM [Suspect]
     Active Substance: ALENDRONATE SODIUM
     Route: 065
  15. ALENDRONATE SODIUM [Suspect]
     Active Substance: ALENDRONATE SODIUM
     Route: 065
  16. ALENDRONATE SODIUM [Suspect]
     Active Substance: ALENDRONATE SODIUM
     Dosage: UNK, QW
     Route: 065
  17. ALENDRONATE SODIUM [Suspect]
     Active Substance: ALENDRONATE SODIUM
     Route: 065
  18. ALENDRONIC ACID [Suspect]
     Active Substance: ALENDRONIC ACID
     Route: 065
  19. ALENDRONIC ACID [Suspect]
     Active Substance: ALENDRONIC ACID
     Dosage: 100 MG, QD
     Route: 065
  20. ALENDRONIC ACID [Suspect]
     Active Substance: ALENDRONIC ACID
     Dosage: 70 MG, QW
     Route: 065
  21. ALENDRONIC ACID [Suspect]
     Active Substance: ALENDRONIC ACID
     Dosage: 70 MG, QD
     Route: 065
  22. ALENDRONIC ACID [Suspect]
     Active Substance: ALENDRONIC ACID
     Indication: Product used for unknown indication
     Dosage: UNK UNK, QD
     Route: 065
  23. ALENDRONIC ACID [Suspect]
     Active Substance: ALENDRONIC ACID
     Dosage: UNK, QD
     Route: 065
  24. AMOXICILLIN\CLAVULANATE POTASSIUM [Suspect]
     Active Substance: AMOXICILLIN\CLAVULANATE POTASSIUM
     Indication: Product used for unknown indication
     Route: 065
  25. AMOXICILLIN\CLAVULANIC ACID [Suspect]
     Active Substance: AMOXICILLIN\CLAVULANIC ACID
     Indication: Product used for unknown indication
     Route: 065
  26. AMOXICILLIN\CLAVULANIC ACID [Suspect]
     Active Substance: AMOXICILLIN\CLAVULANIC ACID
     Route: 065
  27. APIXABAN [Suspect]
     Active Substance: APIXABAN
     Indication: Product used for unknown indication
     Route: 065
  28. AZATHIOPRINE [Suspect]
     Active Substance: AZATHIOPRINE
     Dosage: 1 DF, QD
     Route: 065
  29. AZATHIOPRINE [Suspect]
     Active Substance: AZATHIOPRINE
     Dosage: 100 MG, QD
     Route: 048
  30. AZATHIOPRINE [Suspect]
     Active Substance: AZATHIOPRINE
     Dosage: 100 MG, QD
     Route: 065
  31. AZATHIOPRINE [Suspect]
     Active Substance: AZATHIOPRINE
     Dosage: 100 MG, QD
     Route: 065
  32. AZATHIOPRINE [Suspect]
     Active Substance: AZATHIOPRINE
     Dosage: 100 MG, QD
     Route: 065
  33. AZATHIOPRINE [Suspect]
     Active Substance: AZATHIOPRINE
     Route: 065
  34. AZATHIOPRINE [Suspect]
     Active Substance: AZATHIOPRINE
     Route: 065
  35. AZATHIOPRINE [Suspect]
     Active Substance: AZATHIOPRINE
     Dosage: 2 DF, QD
     Route: 065
  36. AZATHIOPRINE [Suspect]
     Active Substance: AZATHIOPRINE
     Indication: Product used for unknown indication
     Route: 065
  37. AZATHIOPRINE [Suspect]
     Active Substance: AZATHIOPRINE
     Route: 065
  38. AZATHIOPRINE [Suspect]
     Active Substance: AZATHIOPRINE
     Dosage: 50 MG, QD
     Route: 065
  39. AZATHIOPRINE [Suspect]
     Active Substance: AZATHIOPRINE
     Route: 065
  40. AZATHIOPRINE [Suspect]
     Active Substance: AZATHIOPRINE
     Route: 065
  41. AZATHIOPRINE [Suspect]
     Active Substance: AZATHIOPRINE
     Dosage: UNK, QD
     Route: 065
  42. AZATHIOPRINE [Suspect]
     Active Substance: AZATHIOPRINE
     Dosage: UNK, QD
     Route: 065
  43. AZATHIOPRINE [Suspect]
     Active Substance: AZATHIOPRINE
     Dosage: UNK, QD
     Route: 065
  44. AZATHIOPRINE [Suspect]
     Active Substance: AZATHIOPRINE
     Route: 065
  45. AZATHIOPRINE [Suspect]
     Active Substance: AZATHIOPRINE
     Route: 065
  46. AZATHIOPRINE [Suspect]
     Active Substance: AZATHIOPRINE
     Route: 065
  47. AZITHROMYCIN [Suspect]
     Active Substance: AZITHROMYCIN
     Dosage: 1 DF, QD
     Route: 065
  48. AZITHROMYCIN [Suspect]
     Active Substance: AZITHROMYCIN
     Dosage: 1 DF, QD
     Route: 065
  49. AZITHROMYCIN [Suspect]
     Active Substance: AZITHROMYCIN
     Dosage: 1 DF, Q12H
     Route: 065
  50. AZITHROMYCIN [Suspect]
     Active Substance: AZITHROMYCIN
     Dosage: 1 DF, BID
     Route: 065
  51. AZITHROMYCIN [Suspect]
     Active Substance: AZITHROMYCIN
     Dosage: 1 DF, BID
     Route: 065
  52. AZITHROMYCIN [Suspect]
     Active Substance: AZITHROMYCIN
     Dosage: 1 DF, BID
     Route: 065
  53. AZITHROMYCIN [Suspect]
     Active Substance: AZITHROMYCIN
     Dosage: 2 DF, QD
     Route: 065
  54. AZITHROMYCIN [Suspect]
     Active Substance: AZITHROMYCIN
     Dosage: 2 DF, QD
     Route: 065
  55. AZITHROMYCIN [Suspect]
     Active Substance: AZITHROMYCIN
     Dosage: 2 DF, QD
     Route: 065
  56. AZITHROMYCIN [Suspect]
     Active Substance: AZITHROMYCIN
     Dosage: 2 DF, QD
     Route: 065
  57. AZITHROMYCIN [Suspect]
     Active Substance: AZITHROMYCIN
     Route: 065
  58. AZITHROMYCIN [Suspect]
     Active Substance: AZITHROMYCIN
     Route: 065
  59. AZITHROMYCIN [Suspect]
     Active Substance: AZITHROMYCIN
     Dosage: 250 MG, QD
     Route: 065
  60. AZITHROMYCIN [Suspect]
     Active Substance: AZITHROMYCIN
     Dosage: 250 MG, QD
     Route: 065
  61. AZITHROMYCIN [Suspect]
     Active Substance: AZITHROMYCIN
     Route: 065
  62. AZITHROMYCIN [Suspect]
     Active Substance: AZITHROMYCIN
     Indication: Product used for unknown indication
     Dosage: UNK, QD
     Route: 065
  63. AZITHROMYCIN [Suspect]
     Active Substance: AZITHROMYCIN
     Dosage: UNK, QD
     Route: 065
  64. AZITHROMYCIN [Suspect]
     Active Substance: AZITHROMYCIN
     Dosage: UNK, Q12H
     Route: 065
  65. AZITHROMYCIN [Suspect]
     Active Substance: AZITHROMYCIN
     Dosage: UNK, BID
     Route: 065
  66. AZITHROMYCIN [Suspect]
     Active Substance: AZITHROMYCIN
     Dosage: UNK, BID
     Route: 065
  67. AZITHROMYCIN [Suspect]
     Active Substance: AZITHROMYCIN
     Route: 065
  68. AZITHROMYCIN [Suspect]
     Active Substance: AZITHROMYCIN
     Route: 065
  69. AZITHROMYCIN DIHYDRATE [Suspect]
     Active Substance: AZITHROMYCIN DIHYDRATE
     Dosage: 1 DF, QD
     Route: 065
  70. AZITHROMYCIN DIHYDRATE [Suspect]
     Active Substance: AZITHROMYCIN DIHYDRATE
     Indication: Product used for unknown indication
     Dosage: 2 DF, QD
     Route: 065
  71. AZITHROMYCIN DIHYDRATE [Suspect]
     Active Substance: AZITHROMYCIN DIHYDRATE
     Dosage: 2 DF, QD
     Route: 065
  72. AZITHROMYCIN DIHYDRATE [Suspect]
     Active Substance: AZITHROMYCIN DIHYDRATE
     Dosage: UNK, QD
     Route: 065
  73. AZITHROMYCIN DIHYDRATE [Suspect]
     Active Substance: AZITHROMYCIN DIHYDRATE
     Dosage: UNK, QD
     Route: 065
  74. ACETAZOLAMIDE [Suspect]
     Active Substance: ACETAZOLAMIDE
     Indication: Product used for unknown indication
     Route: 065
  75. ADVAIR HFA [Suspect]
     Active Substance: FLUTICASONE PROPIONATE\SALMETEROL XINAFOATE
     Indication: Product used for unknown indication
     Route: 065
  76. ALBUTEROL [Suspect]
     Active Substance: ALBUTEROL
     Indication: Eosinophilic granulomatosis with polyangiitis
     Route: 065
  77. ALBUTEROL [Suspect]
     Active Substance: ALBUTEROL
     Route: 065
  78. ALBUTEROL [Suspect]
     Active Substance: ALBUTEROL
     Route: 065
  79. ALENDRONATE SODIUM [Suspect]
     Active Substance: ALENDRONATE SODIUM
     Dosage: 1 DF, QW
     Route: 065
  80. ALENDRONATE SODIUM [Suspect]
     Active Substance: ALENDRONATE SODIUM
     Indication: Product used for unknown indication
     Dosage: 1 DOSAGE FORM, QW
     Route: 065
  81. ALENDRONATE SODIUM [Suspect]
     Active Substance: ALENDRONATE SODIUM
     Dosage: 1 DOSAGE FORM, QW
     Route: 065
  82. ALENDRONATE SODIUM [Suspect]
     Active Substance: ALENDRONATE SODIUM
     Dosage: 1 DOSAGE FORM, QW
     Route: 065
  83. ALENDRONATE SODIUM [Suspect]
     Active Substance: ALENDRONATE SODIUM
     Route: 065
  84. ALENDRONATE SODIUM [Suspect]
     Active Substance: ALENDRONATE SODIUM
     Route: 065
  85. ALENDRONATE SODIUM [Suspect]
     Active Substance: ALENDRONATE SODIUM
     Route: 065
  86. ALENDRONATE SODIUM [Suspect]
     Active Substance: ALENDRONATE SODIUM
     Route: 065
  87. ALENDRONATE SODIUM [Suspect]
     Active Substance: ALENDRONATE SODIUM
     Route: 065
  88. ALENDRONATE SODIUM [Suspect]
     Active Substance: ALENDRONATE SODIUM
     Route: 065
  89. ALENDRONATE SODIUM [Suspect]
     Active Substance: ALENDRONATE SODIUM
     Route: 065
  90. ALENDRONATE SODIUM [Suspect]
     Active Substance: ALENDRONATE SODIUM
     Route: 065
  91. ALENDRONATE SODIUM [Suspect]
     Active Substance: ALENDRONATE SODIUM
     Dosage: 100 MG, QD
     Route: 065
  92. ALENDRONATE SODIUM [Suspect]
     Active Substance: ALENDRONATE SODIUM
     Dosage: 100 MG, QD
     Route: 065
  93. ALENDRONATE SODIUM [Suspect]
     Active Substance: ALENDRONATE SODIUM
     Dosage: 70 MG, QW
     Route: 065
  94. ALENDRONATE SODIUM [Suspect]
     Active Substance: ALENDRONATE SODIUM
     Dosage: 70 MG, QW
     Route: 065
  95. ALENDRONATE SODIUM [Suspect]
     Active Substance: ALENDRONATE SODIUM
     Dosage: 70 MG, QW
     Route: 065
  96. ALENDRONATE SODIUM [Suspect]
     Active Substance: ALENDRONATE SODIUM
     Route: 065
  97. ALENDRONATE SODIUM [Suspect]
     Active Substance: ALENDRONATE SODIUM
     Route: 065
  98. ALENDRONATE SODIUM [Suspect]
     Active Substance: ALENDRONATE SODIUM
     Route: 065
  99. ALENDRONATE SODIUM [Suspect]
     Active Substance: ALENDRONATE SODIUM
     Route: 065
  100. ALENDRONATE SODIUM [Suspect]
     Active Substance: ALENDRONATE SODIUM
     Route: 065
  101. ALENDRONATE SODIUM [Suspect]
     Active Substance: ALENDRONATE SODIUM
     Dosage: UNK, QW
     Route: 065
  102. ALENDRONATE SODIUM [Suspect]
     Active Substance: ALENDRONATE SODIUM
     Route: 065
  103. ALENDRONATE SODIUM [Suspect]
     Active Substance: ALENDRONATE SODIUM
     Route: 065
  104. AMOXICILLIN [Suspect]
     Active Substance: AMOXICILLIN
     Indication: Product used for unknown indication
     Route: 065
  105. ANORO ELLIPTA [Suspect]
     Active Substance: UMECLIDINIUM BROMIDE\VILANTEROL TRIFENATATE
     Indication: Product used for unknown indication
     Dosage: 1 DF, QD
     Route: 065
  106. BUDESONIDE [Suspect]
     Active Substance: BUDESONIDE
     Route: 055
  107. BUDESONIDE [Suspect]
     Active Substance: BUDESONIDE
     Indication: Product used for unknown indication
     Route: 065
  108. BASAGLAR [Suspect]
     Active Substance: INSULIN GLARGINE
     Route: 058
  109. BASAGLAR [Suspect]
     Active Substance: INSULIN GLARGINE
     Route: 058
  110. BASAGLAR [Suspect]
     Active Substance: INSULIN GLARGINE
     Route: 058
  111. BASAGLAR [Suspect]
     Active Substance: INSULIN GLARGINE
     Route: 065
  112. BASAGLAR [Suspect]
     Active Substance: INSULIN GLARGINE
     Indication: Product used for unknown indication
     Dosage: UNK, QD
     Route: 058
  113. BASAGLAR [Suspect]
     Active Substance: INSULIN GLARGINE
     Route: 058
  114. BECLOMETHASONE [Suspect]
     Active Substance: BECLOMETHASONE
     Indication: Product used for unknown indication
     Route: 065
  115. BENFOTIAMINE [Suspect]
     Active Substance: BENFOTIAMINE
     Indication: Product used for unknown indication
     Route: 065
  116. BETA GLUCAN [Suspect]
     Active Substance: BETA GLUCAN
     Indication: Product used for unknown indication
     Route: 065
  117. BETA GLUCAN [Suspect]
     Active Substance: BETA GLUCAN
     Route: 065
  118. BETAMETHASONE [Suspect]
     Active Substance: BETAMETHASONE
     Indication: Product used for unknown indication
     Route: 065
  119. BETAMETHASONE [Suspect]
     Active Substance: BETAMETHASONE
     Route: 065
  120. BETAMETHASONE DIPROPIONATE [Suspect]
     Active Substance: BETAMETHASONE DIPROPIONATE
     Indication: Product used for unknown indication
     Route: 065
  121. BETAMETHASONE DIPROPIONATE [Suspect]
     Active Substance: BETAMETHASONE DIPROPIONATE
     Route: 065
  122. BETAMETHASONE DIPROPIONATE [Suspect]
     Active Substance: BETAMETHASONE DIPROPIONATE
     Route: 065
  123. BETAMETHASONE DIPROPIONATE [Suspect]
     Active Substance: BETAMETHASONE DIPROPIONATE
     Route: 065
  124. BETAMETHASONE DIPROPIONATE [Suspect]
     Active Substance: BETAMETHASONE DIPROPIONATE
     Route: 065
  125. BETAMETHASONE DIPROPIONATE [Suspect]
     Active Substance: BETAMETHASONE DIPROPIONATE
     Route: 065
  126. BETAMETHASONE DIPROPIONATE [Suspect]
     Active Substance: BETAMETHASONE DIPROPIONATE
     Route: 065
  127. BETAMETHASONE DIPROPIONATE [Suspect]
     Active Substance: BETAMETHASONE DIPROPIONATE
     Route: 065
  128. BETAMETHASONE DIPROPIONATE\CLOTRIMAZOLE\GENTAMICIN SULFATE [Suspect]
     Active Substance: BETAMETHASONE DIPROPIONATE\CLOTRIMAZOLE\GENTAMICIN SULFATE
     Indication: Product used for unknown indication
     Route: 065
  129. BISACODYL [Suspect]
     Active Substance: BISACODYL
     Indication: Product used for unknown indication
     Route: 065
  130. BREO ELLIPTA [Suspect]
     Active Substance: FLUTICASONE FUROATE\VILANTEROL TRIFENATATE
     Indication: Product used for unknown indication
     Route: 065
  131. BUDESONIDE\FORMOTEROL FUMARATE [Suspect]
     Active Substance: BUDESONIDE\FORMOTEROL FUMARATE
     Indication: Product used for unknown indication
     Route: 065
  132. BUDESONIDE\FORMOTEROL FUMARATE [Suspect]
     Active Substance: BUDESONIDE\FORMOTEROL FUMARATE
     Route: 065
  133. CANDESARTAN CILEXETIL [Suspect]
     Active Substance: CANDESARTAN CILEXETIL
     Dosage: 1 DF, QD
     Route: 048
  134. CANDESARTAN CILEXETIL [Suspect]
     Active Substance: CANDESARTAN CILEXETIL
     Dosage: 1 DF, QD
     Route: 048
  135. CANDESARTAN CILEXETIL [Suspect]
     Active Substance: CANDESARTAN CILEXETIL
     Dosage: 1 DF, QD
     Route: 048
  136. CANDESARTAN CILEXETIL [Suspect]
     Active Substance: CANDESARTAN CILEXETIL
     Indication: Product used for unknown indication
     Dosage: 1 DF, QD
     Route: 065
  137. CANDESARTAN CILEXETIL [Suspect]
     Active Substance: CANDESARTAN CILEXETIL
     Dosage: 1 DF, QD
     Route: 065
  138. CANDESARTAN CILEXETIL [Suspect]
     Active Substance: CANDESARTAN CILEXETIL
     Dosage: 1 DF, QD
     Route: 065
  139. CANDESARTAN CILEXETIL [Suspect]
     Active Substance: CANDESARTAN CILEXETIL
     Dosage: 1 DF, QD
     Route: 065
  140. CANDESARTAN CILEXETIL [Suspect]
     Active Substance: CANDESARTAN CILEXETIL
     Route: 065
  141. CANDESARTAN CILEXETIL [Suspect]
     Active Substance: CANDESARTAN CILEXETIL
     Route: 065
  142. CANDESARTAN CILEXETIL [Suspect]
     Active Substance: CANDESARTAN CILEXETIL
     Dosage: 32 MG, QD
     Route: 048
  143. CANDESARTAN CILEXETIL [Suspect]
     Active Substance: CANDESARTAN CILEXETIL
     Dosage: 32 MG, QD
     Route: 048
  144. CANDESARTAN CILEXETIL [Suspect]
     Active Substance: CANDESARTAN CILEXETIL
     Dosage: 32 MG, QD
     Route: 048
  145. CANDESARTAN CILEXETIL [Suspect]
     Active Substance: CANDESARTAN CILEXETIL
     Route: 065
  146. CANDESARTAN CILEXETIL [Suspect]
     Active Substance: CANDESARTAN CILEXETIL
     Dosage: UNK, QD
     Route: 065
  147. CANDESARTAN CILEXETIL [Suspect]
     Active Substance: CANDESARTAN CILEXETIL
     Dosage: UNK, QD
     Route: 065
  148. CANDESARTAN CILEXETIL [Suspect]
     Active Substance: CANDESARTAN CILEXETIL
     Dosage: UNK, QD
     Route: 065
  149. CANDESARTAN CILEXETIL [Suspect]
     Active Substance: CANDESARTAN CILEXETIL
     Dosage: UNK, QD
     Route: 065
  150. CANDESARTAN CILEXETIL [Suspect]
     Active Substance: CANDESARTAN CILEXETIL
     Route: 065
  151. CANDESARTAN CILEXETIL [Suspect]
     Active Substance: CANDESARTAN CILEXETIL
     Route: 065
  152. CANDESARTAN CILEXETIL\HYDROCHLOROTHIAZIDE [Suspect]
     Active Substance: CANDESARTAN CILEXETIL\HYDROCHLOROTHIAZIDE
     Dosage: 1 DOSAGE FORM, 1 EVERY 1 DAYS
     Route: 065
  153. CANDESARTAN CILEXETIL\HYDROCHLOROTHIAZIDE [Suspect]
     Active Substance: CANDESARTAN CILEXETIL\HYDROCHLOROTHIAZIDE
     Route: 048
  154. CANDESARTAN CILEXETIL\HYDROCHLOROTHIAZIDE [Suspect]
     Active Substance: CANDESARTAN CILEXETIL\HYDROCHLOROTHIAZIDE
     Route: 048
  155. CANDESARTAN CILEXETIL\HYDROCHLOROTHIAZIDE [Suspect]
     Active Substance: CANDESARTAN CILEXETIL\HYDROCHLOROTHIAZIDE
     Route: 048
  156. CANDESARTAN CILEXETIL\HYDROCHLOROTHIAZIDE [Suspect]
     Active Substance: CANDESARTAN CILEXETIL\HYDROCHLOROTHIAZIDE
     Route: 065
  157. CANDESARTAN CILEXETIL\HYDROCHLOROTHIAZIDE [Suspect]
     Active Substance: CANDESARTAN CILEXETIL\HYDROCHLOROTHIAZIDE
     Indication: Product used for unknown indication
     Route: 065
  158. CARBAMAZEPINE [Suspect]
     Active Substance: CARBAMAZEPINE
     Indication: Product used for unknown indication
     Route: 065
  159. CEFUROXIME AXETIL [Suspect]
     Active Substance: CEFUROXIME AXETIL
     Dosage: 1 DF, BID
     Route: 065
  160. CEFUROXIME AXETIL [Suspect]
     Active Substance: CEFUROXIME AXETIL
     Route: 065
  161. CEFUROXIME AXETIL [Suspect]
     Active Substance: CEFUROXIME AXETIL
     Route: 065
  162. CEFUROXIME AXETIL [Suspect]
     Active Substance: CEFUROXIME AXETIL
     Dosage: 2 DF, QD
     Route: 065
  163. CEFUROXIME AXETIL [Suspect]
     Active Substance: CEFUROXIME AXETIL
     Dosage: 2 DF, QD
     Route: 065
  164. CEFUROXIME AXETIL [Suspect]
     Active Substance: CEFUROXIME AXETIL
     Indication: Product used for unknown indication
     Dosage: 2 DF, BID
     Route: 065
  165. CEFUROXIME AXETIL [Suspect]
     Active Substance: CEFUROXIME AXETIL
     Route: 065
  166. CEFUROXIME AXETIL [Suspect]
     Active Substance: CEFUROXIME AXETIL
     Dosage: 4 DF, QD
     Route: 065
  167. CEFUROXIME AXETIL [Suspect]
     Active Substance: CEFUROXIME AXETIL
     Dosage: 4 DF, QD
     Route: 065
  168. CEFUROXIME AXETIL [Suspect]
     Active Substance: CEFUROXIME AXETIL
     Route: 065
  169. CEFUROXIME AXETIL [Suspect]
     Active Substance: CEFUROXIME AXETIL
     Dosage: 500 MG, QD
     Route: 065
  170. CEFUROXIME AXETIL [Suspect]
     Active Substance: CEFUROXIME AXETIL
     Dosage: 500 MG, QD
     Route: 065
  171. CEFUROXIME AXETIL [Suspect]
     Active Substance: CEFUROXIME AXETIL
     Dosage: 500 MG, Q12H
     Route: 065
  172. CEFUROXIME AXETIL [Suspect]
     Active Substance: CEFUROXIME AXETIL
     Dosage: 500 MG, BID
     Route: 065
  173. CEFUROXIME AXETIL [Suspect]
     Active Substance: CEFUROXIME AXETIL
     Dosage: 500 MG, BID
     Route: 065
  174. CEFUROXIME AXETIL [Suspect]
     Active Substance: CEFUROXIME AXETIL
     Route: 065
  175. CEFUROXIME AXETIL [Suspect]
     Active Substance: CEFUROXIME AXETIL
     Dosage: UNK, QD
     Route: 065
  176. CEFUROXIME AXETIL [Suspect]
     Active Substance: CEFUROXIME AXETIL
     Dosage: UNK, BID
     Route: 065
  177. CEFUROXIME AXETIL [Suspect]
     Active Substance: CEFUROXIME AXETIL
     Route: 065
  178. CEFUROXIME AXETIL [Suspect]
     Active Substance: CEFUROXIME AXETIL
     Route: 065
  179. CALCIUM CARBONATE [Suspect]
     Active Substance: CALCIUM CARBONATE
     Indication: Product used for unknown indication
     Dosage: 1 DF, QD
     Route: 065
  180. CALCIUM CARBONATE [Suspect]
     Active Substance: CALCIUM CARBONATE
     Dosage: 1 DF, QD
     Route: 065
  181. CALCIUM CARBONATE [Suspect]
     Active Substance: CALCIUM CARBONATE
     Dosage: 1 DF, QD
     Route: 065
  182. CALCIUM CARBONATE [Suspect]
     Active Substance: CALCIUM CARBONATE
     Dosage: 1 DF, QD
     Route: 065
  183. CALCIUM CARBONATE [Suspect]
     Active Substance: CALCIUM CARBONATE
     Dosage: 2 DF, QD
     Route: 065
  184. CALCIUM CARBONATE [Suspect]
     Active Substance: CALCIUM CARBONATE
     Dosage: 2 DF, QD
     Route: 065
  185. CALCIUM CARBONATE [Suspect]
     Active Substance: CALCIUM CARBONATE
     Dosage: 500 MG, QD
     Route: 065
  186. CALCIUM CARBONATE [Suspect]
     Active Substance: CALCIUM CARBONATE
     Dosage: 500 MG, QD
     Route: 065
  187. CALCIUM CARBONATE [Suspect]
     Active Substance: CALCIUM CARBONATE
     Route: 065
  188. CALCIUM CARBONATE [Suspect]
     Active Substance: CALCIUM CARBONATE
     Dosage: UNK, QD
     Route: 065
  189. CALCIUM CARBONATE [Suspect]
     Active Substance: CALCIUM CARBONATE
     Dosage: UNK, QD
     Route: 065
  190. CALCIUM CARBONATE [Suspect]
     Active Substance: CALCIUM CARBONATE
     Route: 065
  191. CALCIUM LACTATE [Suspect]
     Active Substance: CALCIUM LACTATE
     Indication: Product used for unknown indication
     Route: 065
  192. CANDESARTAN [Suspect]
     Active Substance: CANDESARTAN
     Dosage: 1 DF, QD
     Route: 048
  193. CANDESARTAN [Suspect]
     Active Substance: CANDESARTAN
     Dosage: 1 DF, QD
     Route: 048
  194. CANDESARTAN [Suspect]
     Active Substance: CANDESARTAN
     Dosage: 1 DF, QD
     Route: 065
  195. CANDESARTAN [Suspect]
     Active Substance: CANDESARTAN
     Dosage: 1 DF, QD
     Route: 065
  196. CANDESARTAN [Suspect]
     Active Substance: CANDESARTAN
     Dosage: 1 DF, QD
     Route: 065
  197. CANDESARTAN [Suspect]
     Active Substance: CANDESARTAN
     Dosage: 1 DF, QD
     Route: 065
  198. CANDESARTAN [Suspect]
     Active Substance: CANDESARTAN
     Dosage: 1 DF, QD
     Route: 065
  199. CANDESARTAN [Suspect]
     Active Substance: CANDESARTAN
     Dosage: 1 DF, QD
     Route: 065
  200. CANDESARTAN [Suspect]
     Active Substance: CANDESARTAN
     Dosage: 32 MG, QD
     Route: 048
  201. CANDESARTAN [Suspect]
     Active Substance: CANDESARTAN
     Dosage: 32 MG, QD
     Route: 065
  202. CANDESARTAN [Suspect]
     Active Substance: CANDESARTAN
     Dosage: 32 MG, QD
     Route: 065
  203. CANDESARTAN [Suspect]
     Active Substance: CANDESARTAN
     Route: 065
  204. CANDESARTAN [Suspect]
     Active Substance: CANDESARTAN
     Dosage: UNK, QD
     Route: 048
  205. CANDESARTAN [Suspect]
     Active Substance: CANDESARTAN
     Dosage: UNK, QD
     Route: 065
  206. CANDESARTAN [Suspect]
     Active Substance: CANDESARTAN
     Dosage: UNK, QD
     Route: 065
  207. CANDESARTAN [Suspect]
     Active Substance: CANDESARTAN
     Dosage: UNK, QD
     Route: 065
  208. CANDESARTAN [Suspect]
     Active Substance: CANDESARTAN
     Dosage: UNK, QD
     Route: 065
  209. CANDESARTAN [Suspect]
     Active Substance: CANDESARTAN
     Dosage: UNK, QD
     Route: 065
  210. CANDESARTAN [Suspect]
     Active Substance: CANDESARTAN
     Dosage: UNK, QD
     Route: 065
  211. CANDESARTAN [Suspect]
     Active Substance: CANDESARTAN
     Route: 048
  212. CANDESARTAN [Suspect]
     Active Substance: CANDESARTAN
     Route: 048
  213. CANDESARTAN [Suspect]
     Active Substance: CANDESARTAN
     Indication: Product used for unknown indication
     Route: 065
  214. CEFUROXIME [Suspect]
     Active Substance: CEFUROXIME
     Dosage: 1 DF, Q12H
     Route: 065
  215. CEFUROXIME [Suspect]
     Active Substance: CEFUROXIME
     Dosage: 1 DF, QD
     Route: 065
  216. CEFUROXIME [Suspect]
     Active Substance: CEFUROXIME
     Dosage: UNK, BID
     Route: 065
  217. CEFUROXIME [Suspect]
     Active Substance: CEFUROXIME
     Dosage: 1000 MG
     Route: 065
  218. CEFUROXIME [Suspect]
     Active Substance: CEFUROXIME
     Dosage: 2 DF, Q12H
     Route: 065
  219. CEFUROXIME [Suspect]
     Active Substance: CEFUROXIME
     Indication: Product used for unknown indication
     Dosage: 2 DF, QD
     Route: 065
  220. CEFUROXIME [Suspect]
     Active Substance: CEFUROXIME
     Dosage: 2 DF, QD
     Route: 065
  221. CEFUROXIME [Suspect]
     Active Substance: CEFUROXIME
     Dosage: 2 DF, Q12H
     Route: 065
  222. CEFUROXIME [Suspect]
     Active Substance: CEFUROXIME
     Dosage: 2 DF, BID
     Route: 065
  223. CEFUROXIME [Suspect]
     Active Substance: CEFUROXIME
     Dosage: UNK
     Route: 065
  224. CEFUROXIME [Suspect]
     Active Substance: CEFUROXIME
     Route: 065
  225. CEFUROXIME [Suspect]
     Active Substance: CEFUROXIME
     Route: 065
  226. CEFUROXIME [Suspect]
     Active Substance: CEFUROXIME
     Dosage: 4 DF, QD
     Route: 065
  227. CEFUROXIME [Suspect]
     Active Substance: CEFUROXIME
     Dosage: 500 MG, BID
     Route: 065
  228. CEFUROXIME [Suspect]
     Active Substance: CEFUROXIME
     Route: 065
  229. CEFUROXIME SODIUM [Suspect]
     Active Substance: CEFUROXIME SODIUM
     Dosage: 1 DF, QD
     Route: 065
  230. CEFUROXIME SODIUM [Suspect]
     Active Substance: CEFUROXIME SODIUM
     Dosage: 1 DF, Q12H
     Route: 065
  231. CEFUROXIME SODIUM [Suspect]
     Active Substance: CEFUROXIME SODIUM
     Route: 065
  232. CEFUROXIME SODIUM [Suspect]
     Active Substance: CEFUROXIME SODIUM
     Route: 065
  233. CEFUROXIME SODIUM [Suspect]
     Active Substance: CEFUROXIME SODIUM
     Route: 065
  234. CEFUROXIME SODIUM [Suspect]
     Active Substance: CEFUROXIME SODIUM
     Route: 065
  235. CEFUROXIME SODIUM [Suspect]
     Active Substance: CEFUROXIME SODIUM
     Route: 065
  236. CEFUROXIME SODIUM [Suspect]
     Active Substance: CEFUROXIME SODIUM
     Dosage: 2 DF, QD
     Route: 065
  237. CEFUROXIME SODIUM [Suspect]
     Active Substance: CEFUROXIME SODIUM
     Dosage: 2 DF, QD
     Route: 065
  238. CEFUROXIME SODIUM [Suspect]
     Active Substance: CEFUROXIME SODIUM
     Dosage: 2 DF, QD
     Route: 065
  239. CEFUROXIME SODIUM [Suspect]
     Active Substance: CEFUROXIME SODIUM
     Dosage: 2 DF, Q12H
     Route: 065
  240. CEFUROXIME SODIUM [Suspect]
     Active Substance: CEFUROXIME SODIUM
     Dosage: 2 DF, Q12H
     Route: 065
  241. CEFUROXIME SODIUM [Suspect]
     Active Substance: CEFUROXIME SODIUM
     Indication: Product used for unknown indication
     Dosage: 4 DOSAGE FORM, QD
     Route: 065
  242. CEFUROXIME SODIUM [Suspect]
     Active Substance: CEFUROXIME SODIUM
     Route: 065
  243. CEFUROXIME SODIUM [Suspect]
     Active Substance: CEFUROXIME SODIUM
     Dosage: 500 MG, BID
     Route: 065
  244. CEFUROXIME SODIUM [Suspect]
     Active Substance: CEFUROXIME SODIUM
     Route: 065
  245. CEFUROXIME SODIUM [Suspect]
     Active Substance: CEFUROXIME SODIUM
     Route: 065
  246. CEFUROXIME SODIUM [Suspect]
     Active Substance: CEFUROXIME SODIUM
     Dosage: UNK UNK, QD
     Route: 065
  247. CEFUROXIME SODIUM [Suspect]
     Active Substance: CEFUROXIME SODIUM
     Dosage: UNK, QD
     Route: 065
  248. CEFUROXIME SODIUM [Suspect]
     Active Substance: CEFUROXIME SODIUM
     Dosage: UNK, QD
     Route: 065
  249. CEFUROXIME SODIUM [Suspect]
     Active Substance: CEFUROXIME SODIUM
     Dosage: UNK, QD
     Route: 065
  250. CEFUROXIME SODIUM [Suspect]
     Active Substance: CEFUROXIME SODIUM
     Dosage: UNK, QD
     Route: 065
  251. CEFUROXIME SODIUM [Suspect]
     Active Substance: CEFUROXIME SODIUM
     Dosage: UNK, QD
     Route: 065
  252. CEFUROXIME SODIUM [Suspect]
     Active Substance: CEFUROXIME SODIUM
     Dosage: UNK, BID
     Route: 065
  253. CEFUROXIME SODIUM [Suspect]
     Active Substance: CEFUROXIME SODIUM
     Dosage: UNK, BID
     Route: 065
  254. CEFUROXIME SODIUM [Suspect]
     Active Substance: CEFUROXIME SODIUM
     Route: 065
  255. CEFUROXIME SODIUM [Suspect]
     Active Substance: CEFUROXIME SODIUM
     Route: 065
  256. CEFUROXIME SODIUM [Suspect]
     Active Substance: CEFUROXIME SODIUM
     Route: 065
  257. CEFUROXIME SODIUM [Suspect]
     Active Substance: CEFUROXIME SODIUM
     Route: 065
  258. CEPHALEXIN [Suspect]
     Active Substance: CEPHALEXIN
     Indication: Product used for unknown indication
     Route: 065
  259. CEPHALEXIN [Suspect]
     Active Substance: CEPHALEXIN
     Route: 065
  260. CEPHALEXIN [Suspect]
     Active Substance: CEPHALEXIN
     Route: 065
  261. CEPHALEXIN MONOHYDRATE [Suspect]
     Active Substance: CEPHALEXIN MONOHYDRATE
     Indication: Product used for unknown indication
     Route: 065
  262. CHOLECALCIFEROL [Suspect]
     Active Substance: CHOLECALCIFEROL
     Indication: Product used for unknown indication
     Route: 065
  263. CLOTRIMAZOLE [Suspect]
     Active Substance: CLOTRIMAZOLE
     Route: 065
  264. CLOTRIMAZOLE [Suspect]
     Active Substance: CLOTRIMAZOLE
     Indication: Product used for unknown indication
     Route: 065
  265. CLOTRIMAZOLE [Suspect]
     Active Substance: CLOTRIMAZOLE
     Route: 065
  266. CLOTRIMAZOLE [Suspect]
     Active Substance: CLOTRIMAZOLE
     Route: 065
  267. CLOTRIMAZOLE [Suspect]
     Active Substance: CLOTRIMAZOLE
     Route: 065
  268. CLOTRIMAZOLE AND BETAMETHASONE DIPROPIONATE [Suspect]
     Active Substance: BETAMETHASONE\BETAMETHASONE DIPROPIONATE\CLOTRIMAZOLE
     Indication: Product used for unknown indication
     Route: 065
  269. CUPRIC SULFATE ANHYDROUS [Suspect]
     Active Substance: CUPRIC SULFATE ANHYDROUS
     Indication: Product used for unknown indication
     Route: 065
  270. .ALPHA.-TOCOPHEROL ACETATE, D- [Suspect]
     Active Substance: .ALPHA.-TOCOPHEROL ACETATE, D-
     Indication: Product used for unknown indication
     Route: 065
  271. DIABETA [Suspect]
     Active Substance: GLYBURIDE
     Indication: Product used for unknown indication
     Route: 065
  272. DOMPERIDONE MALEATE [Suspect]
     Active Substance: DOMPERIDONE MALEATE
     Dosage: 1 DF, QD
     Route: 065
  273. DOMPERIDONE MALEATE [Suspect]
     Active Substance: DOMPERIDONE MALEATE
     Route: 065
  274. DOMPERIDONE MALEATE [Suspect]
     Active Substance: DOMPERIDONE MALEATE
     Route: 065
  275. DOMPERIDONE MALEATE [Suspect]
     Active Substance: DOMPERIDONE MALEATE
     Dosage: 10 MG, BID
     Route: 065
  276. DOMPERIDONE MALEATE [Suspect]
     Active Substance: DOMPERIDONE MALEATE
     Route: 065
  277. DOMPERIDONE MALEATE [Suspect]
     Active Substance: DOMPERIDONE MALEATE
     Dosage: 2 DF, QD
     Route: 065
  278. DOMPERIDONE MALEATE [Suspect]
     Active Substance: DOMPERIDONE MALEATE
     Dosage: 2 DF, QD
     Route: 065
  279. DOMPERIDONE MALEATE [Suspect]
     Active Substance: DOMPERIDONE MALEATE
     Dosage: 2 DF, Q12H
     Route: 065
  280. DOMPERIDONE MALEATE [Suspect]
     Active Substance: DOMPERIDONE MALEATE
     Route: 065
  281. DOMPERIDONE MALEATE [Suspect]
     Active Substance: DOMPERIDONE MALEATE
     Route: 065
  282. DOMPERIDONE MALEATE [Suspect]
     Active Substance: DOMPERIDONE MALEATE
     Route: 065
  283. DOMPERIDONE MALEATE [Suspect]
     Active Substance: DOMPERIDONE MALEATE
     Dosage: UNK UNK, QD
     Route: 065
  284. DOMPERIDONE MALEATE [Suspect]
     Active Substance: DOMPERIDONE MALEATE
     Dosage: UNK, QD
     Route: 065
  285. DOMPERIDONE MALEATE [Suspect]
     Active Substance: DOMPERIDONE MALEATE
     Dosage: UNK, BID
     Route: 065
  286. DOMPERIDONE MALEATE [Suspect]
     Active Substance: DOMPERIDONE MALEATE
     Indication: Product used for unknown indication
     Route: 065
  287. DOMPERIDONE MALEATE [Suspect]
     Active Substance: DOMPERIDONE MALEATE
     Route: 065
  288. DOMPERIDONE MALEATE [Suspect]
     Active Substance: DOMPERIDONE MALEATE
     Route: 065
  289. DOXAZOSIN [Suspect]
     Active Substance: DOXAZOSIN MESYLATE
     Dosage: 750 MG, QD
     Route: 065
  290. DOXAZOSIN [Suspect]
     Active Substance: DOXAZOSIN MESYLATE
     Indication: Product used for unknown indication
     Route: 065
  291. ERGOCALCIFEROL [Suspect]
     Active Substance: ERGOCALCIFEROL
     Indication: Product used for unknown indication
     Route: 065
  292. ERGOCALCIFEROL [Suspect]
     Active Substance: ERGOCALCIFEROL
     Route: 065
  293. ELIQUIS [Suspect]
     Active Substance: APIXABAN
     Indication: Product used for unknown indication
     Dosage: 750 MG, QD
     Route: 065
  294. ESCITALOPRAM OXALATE [Suspect]
     Active Substance: ESCITALOPRAM OXALATE
     Indication: Product used for unknown indication
     Route: 065
  295. FUROSEMIDE [Suspect]
     Active Substance: FUROSEMIDE
     Dosage: 1 MG, QD
     Route: 065
  296. FUROSEMIDE [Suspect]
     Active Substance: FUROSEMIDE
     Indication: Product used for unknown indication
     Dosage: 1 DF, QD
     Route: 065
  297. FUROSEMIDE [Suspect]
     Active Substance: FUROSEMIDE
     Dosage: 1 DF, QD
     Route: 065
  298. FUROSEMIDE [Suspect]
     Active Substance: FUROSEMIDE
     Dosage: 2 MG, QD
     Route: 065
  299. FUROSEMIDE [Suspect]
     Active Substance: FUROSEMIDE
     Dosage: 2 DF, QD
     Route: 065
  300. FUROSEMIDE [Suspect]
     Active Substance: FUROSEMIDE
     Dosage: 40 MG, QD
     Route: 065
  301. FUROSEMIDE [Suspect]
     Active Substance: FUROSEMIDE
     Route: 065
  302. FUROSEMIDE [Suspect]
     Active Substance: FUROSEMIDE
     Dosage: UNK, QD
     Route: 065
  303. FUROSEMIDE [Suspect]
     Active Substance: FUROSEMIDE
     Dosage: UNK, QD
     Route: 065
  304. FUROSEMIDE [Suspect]
     Active Substance: FUROSEMIDE
     Route: 065
  305. FUROSEMIDE [Suspect]
     Active Substance: FUROSEMIDE
     Route: 065
  306. FUROSEMIDE [Suspect]
     Active Substance: FUROSEMIDE
     Route: 065
  307. FERROUS SULFATE [Suspect]
     Active Substance: FERROUS SULFATE
     Indication: Product used for unknown indication
     Route: 065
  308. FINASTERIDE [Suspect]
     Active Substance: FINASTERIDE
     Indication: Product used for unknown indication
     Route: 065
  309. FINASTERIDE\TAMSULOSIN [Suspect]
     Active Substance: FINASTERIDE\TAMSULOSIN
     Indication: Product used for unknown indication
     Route: 065
  310. FLOMAX [Suspect]
     Active Substance: TAMSULOSIN HYDROCHLORIDE
     Dosage: 1 DF, QW
     Route: 065
  311. FLOMAX [Suspect]
     Active Substance: TAMSULOSIN HYDROCHLORIDE
     Dosage: 1 DF, QD
     Route: 065
  312. FLOMAX [Suspect]
     Active Substance: TAMSULOSIN HYDROCHLORIDE
     Dosage: 1 DF, QD
     Route: 065
  313. FLOMAX [Suspect]
     Active Substance: TAMSULOSIN HYDROCHLORIDE
     Dosage: 100 MG, QD
     Route: 065
  314. FLOMAX [Suspect]
     Active Substance: TAMSULOSIN HYDROCHLORIDE
     Dosage: UNK, QW
     Route: 065
  315. FLOMAX [Suspect]
     Active Substance: TAMSULOSIN HYDROCHLORIDE
     Dosage: UNK, QD
     Route: 065
  316. FLOMAX [Suspect]
     Active Substance: TAMSULOSIN HYDROCHLORIDE
     Dosage: UNK, QD
     Route: 065
  317. FLOMAX [Suspect]
     Active Substance: TAMSULOSIN HYDROCHLORIDE
     Dosage: UNK, QD
     Route: 065
  318. FLOMAX [Suspect]
     Active Substance: TAMSULOSIN HYDROCHLORIDE
     Indication: Product used for unknown indication
     Route: 065
  319. FORMOTEROL [Suspect]
     Active Substance: FORMOTEROL
     Dosage: 750 MG, QD
     Route: 065
  320. FORMOTEROL [Suspect]
     Active Substance: FORMOTEROL
     Indication: Product used for unknown indication
     Route: 065
  321. FORMOTEROL FUMARATE\MOMETASONE FUROATE [Suspect]
     Active Substance: FORMOTEROL FUMARATE\MOMETASONE FUROATE
     Indication: Product used for unknown indication
     Route: 065
  322. FORMOTEROL FUMARATE\MOMETASONE FUROATE [Suspect]
     Active Substance: FORMOTEROL FUMARATE\MOMETASONE FUROATE
     Route: 065
  323. GLUCAGON [Suspect]
     Active Substance: GLUCAGON
     Dosage: 1 MG, QD
     Route: 065
  324. GLUCAGON [Suspect]
     Active Substance: GLUCAGON
     Route: 065
  325. GLUCAGON [Suspect]
     Active Substance: GLUCAGON
     Route: 065
  326. GLUCAGON [Suspect]
     Active Substance: GLUCAGON
     Route: 065
  327. GLUCAGON [Suspect]
     Active Substance: GLUCAGON
     Route: 065
  328. GLUCAGON [Suspect]
     Active Substance: GLUCAGON
     Indication: Product used for unknown indication
     Route: 065
  329. GLUCAGON HYDROCHLORIDE [Suspect]
     Active Substance: GLUCAGON HYDROCHLORIDE
     Indication: Product used for unknown indication
     Route: 065
  330. GLUCAGON HYDROCHLORIDE [Suspect]
     Active Substance: GLUCAGON HYDROCHLORIDE
     Route: 065
  331. HYDROCHLOROTHIAZIDE [Suspect]
     Active Substance: HYDROCHLOROTHIAZIDE
     Dosage: 1 DF, QD
     Route: 048
  332. HYDROCHLOROTHIAZIDE [Suspect]
     Active Substance: HYDROCHLOROTHIAZIDE
     Dosage: 750 MG, QD
     Route: 065
  333. HYDROCHLOROTHIAZIDE [Suspect]
     Active Substance: HYDROCHLOROTHIAZIDE
     Indication: Product used for unknown indication
     Route: 065
  334. IMURAN [Suspect]
     Active Substance: AZATHIOPRINE
     Dosage: UNK, QD
     Route: 065
  335. IMURAN [Suspect]
     Active Substance: AZATHIOPRINE
     Indication: Product used for unknown indication
     Route: 065
  336. INSULIN ASPART [Suspect]
     Active Substance: INSULIN ASPART
     Dosage: UNK, QD
     Route: 058
  337. INSULIN ASPART [Suspect]
     Active Substance: INSULIN ASPART
     Indication: Product used for unknown indication
     Dosage: UNK, QD
     Route: 065
  338. INSULIN ASPART [Suspect]
     Active Substance: INSULIN ASPART
     Dosage: UNK, QD
     Route: 065
  339. INSULIN GLARGINE [Suspect]
     Active Substance: INSULIN GLARGINE
     Route: 065
  340. INSULIN GLARGINE [Suspect]
     Active Substance: INSULIN GLARGINE
     Route: 065
  341. INSULIN GLARGINE [Suspect]
     Active Substance: INSULIN GLARGINE
     Indication: Product used for unknown indication
     Route: 058
  342. INSULIN GLARGINE [Suspect]
     Active Substance: INSULIN GLARGINE
     Route: 058
  343. INSULIN GLARGINE [Suspect]
     Active Substance: INSULIN GLARGINE
     Route: 058
  344. INSULIN GLARGINE [Suspect]
     Active Substance: INSULIN GLARGINE
     Route: 058
  345. INSULIN GLARGINE [Suspect]
     Active Substance: INSULIN GLARGINE
     Route: 058
  346. INSULIN GLARGINE [Suspect]
     Active Substance: INSULIN GLARGINE
     Dosage: UNK, QD
     Route: 065
  347. INSULIN GLARGINE [Suspect]
     Active Substance: INSULIN GLARGINE
     Dosage: UNK, QD
     Route: 065
  348. INSULIN GLARGINE [Suspect]
     Active Substance: INSULIN GLARGINE
     Route: 058
  349. CHOLECALCIFEROL [Suspect]
     Active Substance: CHOLECALCIFEROL
     Indication: Product used for unknown indication
     Route: 065
  350. CHOLECALCIFEROL [Suspect]
     Active Substance: CHOLECALCIFEROL
     Route: 065
  351. CHOLECALCIFEROL [Suspect]
     Active Substance: CHOLECALCIFEROL
     Indication: Product used for unknown indication
     Route: 065
  352. CHOLECALCIFEROL [Suspect]
     Active Substance: CHOLECALCIFEROL
     Route: 065
  353. LEVOFLOXACIN [Suspect]
     Active Substance: LEVOFLOXACIN
     Dosage: 1 DF, QD
     Route: 065
  354. LEVOFLOXACIN [Suspect]
     Active Substance: LEVOFLOXACIN
     Dosage: 1 DF, BID
     Route: 065
  355. LEVOFLOXACIN [Suspect]
     Active Substance: LEVOFLOXACIN
     Dosage: 1 DF, BID
     Route: 065
  356. LEVOFLOXACIN [Suspect]
     Active Substance: LEVOFLOXACIN
     Indication: Product used for unknown indication
     Dosage: 3 DF, QD
     Route: 065
  357. LEVOFLOXACIN [Suspect]
     Active Substance: LEVOFLOXACIN
     Dosage: 3 DF, QD
     Route: 065
  358. LEVOFLOXACIN [Suspect]
     Active Substance: LEVOFLOXACIN
     Route: 065
  359. LEVOFLOXACIN [Suspect]
     Active Substance: LEVOFLOXACIN
     Route: 065
  360. LEVOFLOXACIN [Suspect]
     Active Substance: LEVOFLOXACIN
     Dosage: 750 MG, QD
     Route: 065
  361. LEVOFLOXACIN [Suspect]
     Active Substance: LEVOFLOXACIN
     Dosage: 750 MG, QD
     Route: 065
  362. LEVOFLOXACIN [Suspect]
     Active Substance: LEVOFLOXACIN
     Route: 065
  363. LEVOFLOXACIN [Suspect]
     Active Substance: LEVOFLOXACIN
     Dosage: UNK, TID
     Route: 065
  364. LEVOFLOXACIN [Suspect]
     Active Substance: LEVOFLOXACIN
     Route: 065
  365. LEVOFLOXACIN [Suspect]
     Active Substance: LEVOFLOXACIN
     Route: 065
  366. LEVOFLOXACIN [Suspect]
     Active Substance: LEVOFLOXACIN
     Dosage: 3 DF, QD (SINGLE USE AMPOULES)
     Route: 055
  367. LEVOFLOXACIN [Suspect]
     Active Substance: LEVOFLOXACIN
     Route: 065
  368. LEVOFLOXACIN [Suspect]
     Active Substance: LEVOFLOXACIN
     Route: 065
  369. LEVOFLOXACIN [Suspect]
     Active Substance: LEVOFLOXACIN
     Route: 065
  370. LEVOFLOXACIN [Suspect]
     Active Substance: LEVOFLOXACIN
     Route: 065
  371. LEVOFLOXACIN [Suspect]
     Active Substance: LEVOFLOXACIN
     Route: 065
  372. LEVOFLOXACIN [Suspect]
     Active Substance: LEVOFLOXACIN
     Route: 065
  373. LEVOFLOXACIN [Suspect]
     Active Substance: LEVOFLOXACIN
     Route: 065
  374. LEVOFLOXACIN [Suspect]
     Active Substance: LEVOFLOXACIN
     Route: 065
  375. LEVOFLOXACIN [Suspect]
     Active Substance: LEVOFLOXACIN
     Dosage: UNK, QD
     Route: 055
  376. LEVOFLOXACIN [Suspect]
     Active Substance: LEVOFLOXACIN
     Indication: Product used for unknown indication
     Dosage: UNK, QD
     Route: 065
  377. LEVOFLOXACIN [Suspect]
     Active Substance: LEVOFLOXACIN
     Dosage: UNK, QD
     Route: 065
  378. LEVOFLOXACIN [Suspect]
     Active Substance: LEVOFLOXACIN
     Dosage: UNK, TID
     Route: 065
  379. LEVOFLOXACIN [Suspect]
     Active Substance: LEVOFLOXACIN
     Dosage: UNK, TID
     Route: 065
  380. LEVOFLOXACIN [Suspect]
     Active Substance: LEVOFLOXACIN
     Indication: Product used for unknown indication
     Route: 065
  381. LEVOFLOXACIN [Suspect]
     Active Substance: LEVOFLOXACIN
     Route: 065
  382. LEVOFLOXACIN [Suspect]
     Active Substance: LEVOFLOXACIN
     Route: 065
  383. LEVOTHYROXINE SODIUM [Suspect]
     Active Substance: LEVOTHYROXINE SODIUM
     Indication: Product used for unknown indication
     Route: 065
  384. LASIX [Suspect]
     Active Substance: FUROSEMIDE
     Dosage: 1 DF, QD
     Route: 065
  385. LASIX [Suspect]
     Active Substance: FUROSEMIDE
     Dosage: 2 DF, QD
     Route: 065
  386. LASIX [Suspect]
     Active Substance: FUROSEMIDE
     Dosage: 40 MG, QD
     Route: 065
  387. LASIX [Suspect]
     Active Substance: FUROSEMIDE
     Indication: Product used for unknown indication
     Route: 065
  388. LASIX [Suspect]
     Active Substance: FUROSEMIDE
     Route: 065
  389. LIRAGLUTIDE [Suspect]
     Active Substance: LIRAGLUTIDE
     Indication: Product used for unknown indication
     Route: 065
  390. METFORMIN [Suspect]
     Active Substance: METFORMIN HYDROCHLORIDE
     Dosage: 1 DF, QD
     Route: 065
  391. METFORMIN [Suspect]
     Active Substance: METFORMIN HYDROCHLORIDE
     Dosage: 2 DF, QD
     Route: 065
  392. METFORMIN [Suspect]
     Active Substance: METFORMIN HYDROCHLORIDE
     Dosage: 2 DF, BID
     Route: 065
  393. METFORMIN [Suspect]
     Active Substance: METFORMIN HYDROCHLORIDE
     Dosage: 2 DF, BID
     Route: 065
  394. METFORMIN [Suspect]
     Active Substance: METFORMIN HYDROCHLORIDE
     Route: 065
  395. METFORMIN [Suspect]
     Active Substance: METFORMIN HYDROCHLORIDE
     Dosage: 4 DF, QD
     Route: 065
  396. METFORMIN [Suspect]
     Active Substance: METFORMIN HYDROCHLORIDE
     Dosage: 4 DF, QD
     Route: 065
  397. METFORMIN [Suspect]
     Active Substance: METFORMIN HYDROCHLORIDE
     Route: 065
  398. METFORMIN [Suspect]
     Active Substance: METFORMIN HYDROCHLORIDE
     Indication: Product used for unknown indication
     Dosage: 500 MG, BID
     Route: 065
  399. METFORMIN [Suspect]
     Active Substance: METFORMIN HYDROCHLORIDE
     Dosage: UNK UNK, QD
     Route: 065
  400. METFORMIN [Suspect]
     Active Substance: METFORMIN HYDROCHLORIDE
     Dosage: UNK, BID
     Route: 065
  401. METFORMIN [Suspect]
     Active Substance: METFORMIN HYDROCHLORIDE
     Dosage: UNK, BID
     Route: 065
  402. METFORMIN [Suspect]
     Active Substance: METFORMIN HYDROCHLORIDE
     Route: 065
  403. METFORMIN [Suspect]
     Active Substance: METFORMIN HYDROCHLORIDE
     Route: 065
  404. METFORMIN [Suspect]
     Active Substance: METFORMIN HYDROCHLORIDE
     Route: 065
  405. METFORMIN [Suspect]
     Active Substance: METFORMIN HYDROCHLORIDE
     Route: 065
  406. MONTELUKAST SODIUM [Suspect]
     Active Substance: MONTELUKAST SODIUM
     Indication: Product used for unknown indication
     Route: 065
  407. MONTELUKAST SODIUM [Suspect]
     Active Substance: MONTELUKAST SODIUM
     Indication: Product used for unknown indication
     Route: 065
  408. MAGNESIUM OXIDE [Suspect]
     Active Substance: MAGNESIUM OXIDE
     Dosage: 1 DOSAGE FORM, Q12H
     Route: 065
  409. MAGNESIUM OXIDE [Suspect]
     Active Substance: MAGNESIUM OXIDE
     Route: 065
  410. MAGNESIUM OXIDE [Suspect]
     Active Substance: MAGNESIUM OXIDE
     Indication: Product used for unknown indication
     Dosage: 2 DOSAGE FORM, QD
     Route: 065
  411. MAGNESIUM OXIDE [Suspect]
     Active Substance: MAGNESIUM OXIDE
     Dosage: 2 DOSAGE FORM, QD
     Route: 065
  412. MAGNESIUM OXIDE [Suspect]
     Active Substance: MAGNESIUM OXIDE
     Dosage: 2 DOSAGE FORM, QD
     Route: 065
  413. MAGNESIUM OXIDE [Suspect]
     Active Substance: MAGNESIUM OXIDE
     Route: 065
  414. MAGNESIUM OXIDE [Suspect]
     Active Substance: MAGNESIUM OXIDE
     Route: 065
  415. MAGNESIUM OXIDE [Suspect]
     Active Substance: MAGNESIUM OXIDE
     Route: 065
  416. MAGNESIUM OXIDE [Suspect]
     Active Substance: MAGNESIUM OXIDE
     Route: 065
  417. MAGNESIUM OXIDE [Suspect]
     Active Substance: MAGNESIUM OXIDE
     Dosage: UNK, QD
     Route: 065
  418. MAGNESIUM OXIDE [Suspect]
     Active Substance: MAGNESIUM OXIDE
     Dosage: UNK, QD
     Route: 065
  419. MAGNESIUM OXIDE [Suspect]
     Active Substance: MAGNESIUM OXIDE
     Route: 065
  420. METFORMIN HYDROCHLORIDE [Suspect]
     Active Substance: METFORMIN HYDROCHLORIDE
     Dosage: 2 DF, Q12H
     Route: 065
  421. METFORMIN HYDROCHLORIDE [Suspect]
     Active Substance: METFORMIN HYDROCHLORIDE
     Indication: Product used for unknown indication
     Dosage: 4 DF, QD
     Route: 065
  422. METFORMIN HYDROCHLORIDE [Suspect]
     Active Substance: METFORMIN HYDROCHLORIDE
     Dosage: 500 MG, Q12H
     Route: 065
  423. METFORMIN HYDROCHLORIDE [Suspect]
     Active Substance: METFORMIN HYDROCHLORIDE
     Dosage: UNK, Q12H
     Route: 065
  424. METFORMIN HYDROCHLORIDE [Suspect]
     Active Substance: METFORMIN HYDROCHLORIDE
     Dosage: UNK, Q6H
     Route: 065
  425. MORNIFLUMATE [Suspect]
     Active Substance: MORNIFLUMATE
     Dosage: 1 DF, QD
     Route: 065
  426. MORNIFLUMATE [Suspect]
     Active Substance: MORNIFLUMATE
     Dosage: 1 DF, QD
     Route: 065
  427. MORNIFLUMATE [Suspect]
     Active Substance: MORNIFLUMATE
     Dosage: 100 MG, QD
     Route: 065
  428. MORNIFLUMATE [Suspect]
     Active Substance: MORNIFLUMATE
     Dosage: UNK, QD
     Route: 065
  429. MORNIFLUMATE [Suspect]
     Active Substance: MORNIFLUMATE
     Indication: Product used for unknown indication
     Route: 065
  430. MOXIFLOXACIN [Suspect]
     Active Substance: MOXIFLOXACIN
     Dosage: 750 MG, QD
     Route: 065
  431. MOXIFLOXACIN [Suspect]
     Active Substance: MOXIFLOXACIN
     Indication: Product used for unknown indication
     Route: 065
  432. PANTOPRAZOLE MAGNESIUM [Suspect]
     Active Substance: PANTOPRAZOLE MAGNESIUM
     Dosage: 2 DF, QD (DELAYED- RELEASE)
     Route: 065
  433. PANTOPRAZOLE MAGNESIUM [Suspect]
     Active Substance: PANTOPRAZOLE MAGNESIUM
     Indication: Product used for unknown indication
     Dosage: 40 MG, BID (DELAYED- RELEASE)
     Route: 065
  434. PANTOPRAZOLE MAGNESIUM [Suspect]
     Active Substance: PANTOPRAZOLE MAGNESIUM
     Dosage: UNK, Q12H (DELAYED- RELEASE)
     Route: 065
  435. NICOTINAMIDE [Suspect]
     Active Substance: NIACINAMIDE
     Indication: Product used for unknown indication
     Route: 065
  436. NOVORAPID [Suspect]
     Active Substance: INSULIN ASPART
     Indication: Product used for unknown indication
     Route: 058
  437. NOVORAPID [Suspect]
     Active Substance: INSULIN ASPART
     Dosage: UNK, QD
     Route: 058
  438. NOVORAPID [Suspect]
     Active Substance: INSULIN ASPART
     Dosage: UNK, QD
     Route: 058
  439. NOVORAPID [Suspect]
     Active Substance: INSULIN ASPART
     Route: 065
  440. NUCALA [Suspect]
     Active Substance: MEPOLIZUMAB
     Indication: Product used for unknown indication
     Route: 065
  441. OMNARIS [Suspect]
     Active Substance: CICLESONIDE
     Dosage: 750 MG, QD
     Route: 065
  442. OMNARIS [Suspect]
     Active Substance: CICLESONIDE
     Indication: Product used for unknown indication
     Route: 065
  443. PANTOPRAZOLE [Suspect]
     Active Substance: PANTOPRAZOLE
     Indication: Product used for unknown indication
     Dosage: 1 DF, Q12H
     Route: 065
  444. PANTOPRAZOLE [Suspect]
     Active Substance: PANTOPRAZOLE
     Dosage: 1 DF, Q12H
     Route: 065
  445. PANTOPRAZOLE [Suspect]
     Active Substance: PANTOPRAZOLE
     Dosage: 1 DF, Q12H
     Route: 065
  446. PANTOPRAZOLE [Suspect]
     Active Substance: PANTOPRAZOLE
     Dosage: 1 DF, Q12H
     Route: 065
  447. PANTOPRAZOLE [Suspect]
     Active Substance: PANTOPRAZOLE
     Dosage: 1 DF, Q12H
     Route: 065
  448. PANTOPRAZOLE [Suspect]
     Active Substance: PANTOPRAZOLE
     Dosage: 1 DF, BID
     Route: 065
  449. PANTOPRAZOLE [Suspect]
     Active Substance: PANTOPRAZOLE
     Dosage: 1 DF, BID
     Route: 065
  450. PANTOPRAZOLE [Suspect]
     Active Substance: PANTOPRAZOLE
     Route: 065
  451. PANTOPRAZOLE [Suspect]
     Active Substance: PANTOPRAZOLE
     Route: 065
  452. PANTOPRAZOLE [Suspect]
     Active Substance: PANTOPRAZOLE
     Dosage: 2 DF, QD
     Route: 065
  453. PANTOPRAZOLE [Suspect]
     Active Substance: PANTOPRAZOLE
     Dosage: 2 DF, QD
     Route: 065
  454. PANTOPRAZOLE [Suspect]
     Active Substance: PANTOPRAZOLE
     Dosage: 2 DF, QD
     Route: 065
  455. PANTOPRAZOLE [Suspect]
     Active Substance: PANTOPRAZOLE
     Dosage: 2 DF, QD
     Route: 065
  456. PANTOPRAZOLE [Suspect]
     Active Substance: PANTOPRAZOLE
     Dosage: 2 DF, Q12H
     Route: 065
  457. PANTOPRAZOLE [Suspect]
     Active Substance: PANTOPRAZOLE
     Dosage: 2 DF, Q12H
     Route: 065
  458. PANTOPRAZOLE [Suspect]
     Active Substance: PANTOPRAZOLE
     Route: 065
  459. PANTOPRAZOLE [Suspect]
     Active Substance: PANTOPRAZOLE
     Route: 065
  460. PANTOPRAZOLE [Suspect]
     Active Substance: PANTOPRAZOLE
     Dosage: 4 DF, QD
     Route: 065
  461. PANTOPRAZOLE [Suspect]
     Active Substance: PANTOPRAZOLE
     Dosage: 4 DF, QD
     Route: 065
  462. PANTOPRAZOLE [Suspect]
     Active Substance: PANTOPRAZOLE
     Dosage: 4 DF, BID
     Route: 065
  463. PANTOPRAZOLE [Suspect]
     Active Substance: PANTOPRAZOLE
     Route: 065
  464. PANTOPRAZOLE [Suspect]
     Active Substance: PANTOPRAZOLE
     Dosage: 40 UG, Q12H
     Route: 065
  465. PANTOPRAZOLE [Suspect]
     Active Substance: PANTOPRAZOLE
     Dosage: 40 UG, Q12H
     Route: 065
  466. PANTOPRAZOLE [Suspect]
     Active Substance: PANTOPRAZOLE
     Dosage: 40 UG, BID
     Route: 065
  467. PANTOPRAZOLE [Suspect]
     Active Substance: PANTOPRAZOLE
     Dosage: 40 UG, BID
     Route: 065
  468. PANTOPRAZOLE [Suspect]
     Active Substance: PANTOPRAZOLE
     Dosage: 8 DF, QD
     Route: 065
  469. PANTOPRAZOLE [Suspect]
     Active Substance: PANTOPRAZOLE
     Dosage: UNK, QD
     Route: 065
  470. PANTOPRAZOLE [Suspect]
     Active Substance: PANTOPRAZOLE
     Route: 065
  471. PANTOPRAZOLE [Suspect]
     Active Substance: PANTOPRAZOLE
     Route: 065
  472. PANTOPRAZOLE [Suspect]
     Active Substance: PANTOPRAZOLE
     Route: 065
  473. PANTOPRAZOLE [Suspect]
     Active Substance: PANTOPRAZOLE
     Route: 065
  474. PANTOPRAZOLE SODIUM [Suspect]
     Active Substance: PANTOPRAZOLE SODIUM
     Indication: Product used for unknown indication
     Route: 065
  475. PANTOPRAZOLE SODIUM [Suspect]
     Active Substance: PANTOPRAZOLE SODIUM
     Dosage: 2 DF, QD
     Route: 065
  476. PANTOPRAZOLE SODIUM [Suspect]
     Active Substance: PANTOPRAZOLE SODIUM
     Dosage: 2 DF, BID
     Route: 065
  477. PANTOPRAZOLE SODIUM [Suspect]
     Active Substance: PANTOPRAZOLE SODIUM
     Route: 065
  478. PANTOPRAZOLE SODIUM [Suspect]
     Active Substance: PANTOPRAZOLE SODIUM
     Dosage: 40 MG, QD
     Route: 065
  479. PANTOPRAZOLE SODIUM [Suspect]
     Active Substance: PANTOPRAZOLE SODIUM
     Dosage: 40 UG, BID
     Route: 065
  480. PANTOPRAZOLE SODIUM [Suspect]
     Active Substance: PANTOPRAZOLE SODIUM
     Dosage: UNK, BID
     Route: 065
  481. PANTOPRAZOLE SODIUM [Suspect]
     Active Substance: PANTOPRAZOLE SODIUM
     Dosage: UNK, BID
     Route: 065
  482. PANTOPRAZOLE SODIUM [Suspect]
     Active Substance: PANTOPRAZOLE SODIUM
     Route: 065
  483. PANTOPRAZOLE SODIUM [Suspect]
     Active Substance: PANTOPRAZOLE SODIUM
     Route: 065
  484. PANTOPRAZOLE MAGNESIUM [Suspect]
     Active Substance: PANTOPRAZOLE MAGNESIUM
     Indication: Product used for unknown indication
     Dosage: 1 DF, Q12H
     Route: 065
  485. PANTOPRAZOLE MAGNESIUM [Suspect]
     Active Substance: PANTOPRAZOLE MAGNESIUM
     Dosage: 1 DF, BID
     Route: 065
  486. PANTOPRAZOLE MAGNESIUM [Suspect]
     Active Substance: PANTOPRAZOLE MAGNESIUM
     Dosage: 2 DF, QD
     Route: 065
  487. PANTOPRAZOLE MAGNESIUM [Suspect]
     Active Substance: PANTOPRAZOLE MAGNESIUM
     Dosage: 4 UG, BID
     Route: 065
  488. PANTOPRAZOLE MAGNESIUM [Suspect]
     Active Substance: PANTOPRAZOLE MAGNESIUM
     Dosage: UNK, BID
     Route: 065
  489. PANTOPRAZOLE MAGNESIUM [Suspect]
     Active Substance: PANTOPRAZOLE MAGNESIUM
     Dosage: UNK, BID
     Route: 065
  490. PANTOPRAZOLE SODIUM ANHYDROUS [Suspect]
     Active Substance: PANTOPRAZOLE SODIUM ANHYDROUS
     Indication: Product used for unknown indication
     Route: 065
  491. PANTOPRAZOLE SODIUM [Suspect]
     Active Substance: PANTOPRAZOLE SODIUM
     Dosage: 2 DF, QD (DELAYED RELEASE TABLET)
     Route: 065
  492. PANTOPRAZOLE SODIUM [Suspect]
     Active Substance: PANTOPRAZOLE SODIUM
     Indication: Product used for unknown indication
     Dosage: 40 UG, BID
     Route: 065
  493. PANTOPRAZOLE SODIUM [Suspect]
     Active Substance: PANTOPRAZOLE SODIUM
     Dosage: UNK, QD
     Route: 065
  494. PANTOPRAZOLE SODIUM [Suspect]
     Active Substance: PANTOPRAZOLE SODIUM
     Dosage: UNK, BID
     Route: 065
  495. PANTOPRAZOLE SODIUM [Suspect]
     Active Substance: PANTOPRAZOLE SODIUM
     Route: 065
  496. PANTOPRAZOLE SODIUM [Suspect]
     Active Substance: PANTOPRAZOLE SODIUM
     Route: 065
  497. PANTOTHENIC ACID [Suspect]
     Active Substance: PANTOTHENIC ACID
     Indication: Product used for unknown indication
     Route: 065
  498. PENICILLIN G [Suspect]
     Active Substance: PENICILLIN G
     Indication: Product used for unknown indication
     Route: 065
  499. PENICILLIN V [Suspect]
     Active Substance: PENICILLIN V
     Indication: Product used for unknown indication
     Route: 065
  500. PIOGLITAZONE HYDROCHLORIDE [Suspect]
     Active Substance: PIOGLITAZONE HYDROCHLORIDE
     Indication: Product used for unknown indication
     Route: 065
  501. AZITHROMYCIN ANHYDROUS [Suspect]
     Active Substance: AZITHROMYCIN ANHYDROUS
     Dosage: 1 DF, Q12H
     Route: 065
  502. AZITHROMYCIN ANHYDROUS [Suspect]
     Active Substance: AZITHROMYCIN ANHYDROUS
     Route: 065
  503. AZITHROMYCIN ANHYDROUS [Suspect]
     Active Substance: AZITHROMYCIN ANHYDROUS
     Route: 065
  504. AZITHROMYCIN ANHYDROUS [Suspect]
     Active Substance: AZITHROMYCIN ANHYDROUS
     Route: 065
  505. AZITHROMYCIN ANHYDROUS [Suspect]
     Active Substance: AZITHROMYCIN ANHYDROUS
     Dosage: 250 MG, QD
     Route: 065
  506. AZITHROMYCIN ANHYDROUS [Suspect]
     Active Substance: AZITHROMYCIN ANHYDROUS
     Route: 065
  507. AZITHROMYCIN ANHYDROUS [Suspect]
     Active Substance: AZITHROMYCIN ANHYDROUS
     Route: 065
  508. AZITHROMYCIN ANHYDROUS [Suspect]
     Active Substance: AZITHROMYCIN ANHYDROUS
     Dosage: UNK, QD
     Route: 065
  509. AZITHROMYCIN ANHYDROUS [Suspect]
     Active Substance: AZITHROMYCIN ANHYDROUS
     Dosage: UNK, QD
     Route: 065
  510. AZITHROMYCIN ANHYDROUS [Suspect]
     Active Substance: AZITHROMYCIN ANHYDROUS
     Indication: Product used for unknown indication
     Dosage: UNK, Q12H
     Route: 065
  511. AZITHROMYCIN ANHYDROUS [Suspect]
     Active Substance: AZITHROMYCIN ANHYDROUS
     Route: 065
  512. PREDNISONE [Suspect]
     Active Substance: PREDNISONE
     Dosage: 1 DF, QD
     Route: 065
  513. PREDNISONE [Suspect]
     Active Substance: PREDNISONE
     Dosage: 1 DF, QD
     Route: 065
  514. PREDNISONE [Suspect]
     Active Substance: PREDNISONE
     Dosage: 1 DOSAGE FORM, QD
     Route: 065
  515. PREDNISONE [Suspect]
     Active Substance: PREDNISONE
     Dosage: 10 ML, QD
     Route: 065
  516. PREDNISONE [Suspect]
     Active Substance: PREDNISONE
     Route: 065
  517. PREDNISONE [Suspect]
     Active Substance: PREDNISONE
     Route: 065
  518. PREDNISONE [Suspect]
     Active Substance: PREDNISONE
     Route: 065
  519. PREDNISONE [Suspect]
     Active Substance: PREDNISONE
     Dosage: 50 MG, QD
     Route: 065
  520. PREDNISONE [Suspect]
     Active Substance: PREDNISONE
     Dosage: 80 MG, QD
     Route: 065
  521. PREDNISONE [Suspect]
     Active Substance: PREDNISONE
     Dosage: 80 MG, QD
     Route: 065
  522. PREDNISONE [Suspect]
     Active Substance: PREDNISONE
     Route: 065
  523. PREDNISONE [Suspect]
     Active Substance: PREDNISONE
     Dosage: UNK, QD
     Route: 065
  524. PREDNISONE [Suspect]
     Active Substance: PREDNISONE
     Indication: Asthma
     Route: 065
  525. PREDNISONE [Suspect]
     Active Substance: PREDNISONE
     Route: 065
  526. PREDNISONE [Suspect]
     Active Substance: PREDNISONE
     Route: 065
  527. PREDNISONE [Suspect]
     Active Substance: PREDNISONE
     Route: 065
  528. PREDNISONE [Suspect]
     Active Substance: PREDNISONE
     Route: 065
  529. RUPATADINE [Suspect]
     Active Substance: RUPATADINE
     Indication: Product used for unknown indication
     Route: 065
  530. ALBUTEROL [Suspect]
     Active Substance: ALBUTEROL
     Dosage: UNK, QD
     Route: 065
  531. ALBUTEROL [Suspect]
     Active Substance: ALBUTEROL
     Indication: Eosinophilic granulomatosis with polyangiitis
     Route: 065
  532. ALBUTEROL [Suspect]
     Active Substance: ALBUTEROL
     Indication: Product used for unknown indication
     Route: 065
  533. ALBUTEROL [Suspect]
     Active Substance: ALBUTEROL
     Route: 065
  534. LEVOFLOXACIN [Suspect]
     Active Substance: LEVOFLOXACIN
     Dosage: 750 MG, QD
     Route: 065
  535. LEVOFLOXACIN [Suspect]
     Active Substance: LEVOFLOXACIN
     Dosage: 750 MG, QD
     Route: 065
  536. LEVOFLOXACIN [Suspect]
     Active Substance: LEVOFLOXACIN
     Indication: Product used for unknown indication
     Route: 065
  537. SENNOSIDES [Suspect]
     Active Substance: SENNOSIDES
     Route: 065
  538. SENNOSIDES [Suspect]
     Active Substance: SENNOSIDES
     Route: 065
  539. SENNOSIDES [Suspect]
     Active Substance: SENNOSIDES
     Indication: Product used for unknown indication
     Route: 065
  540. SENNOSIDES [Suspect]
     Active Substance: SENNOSIDES
     Route: 065
  541. SENNOSIDES [Suspect]
     Active Substance: SENNOSIDES
     Route: 065
  542. SENNOSIDES [Suspect]
     Active Substance: SENNOSIDES
     Route: 065
  543. SERTRALINE HYDROCHLORIDE [Suspect]
     Active Substance: SERTRALINE HYDROCHLORIDE
     Indication: Product used for unknown indication
     Route: 065
  544. ALBUTEROL [Suspect]
     Active Substance: ALBUTEROL
     Dosage: 1 UG, QD (METERED DOSE, AEROSOL)
     Route: 065
  545. ALBUTEROL [Suspect]
     Active Substance: ALBUTEROL
     Indication: Eosinophilic granulomatosis with polyangiitis
     Dosage: 1 DF, QD (METERED DOSE, AEROSOL)
     Route: 065
  546. ALBUTEROL [Suspect]
     Active Substance: ALBUTEROL
     Dosage: 100 UG, QD
     Route: 065
  547. ALBUTEROL [Suspect]
     Active Substance: ALBUTEROL
     Indication: Product used for unknown indication
     Route: 065
  548. ALBUTEROL SULFATE [Suspect]
     Active Substance: ALBUTEROL SULFATE
     Dosage: 1 UG, QD
     Route: 065
  549. ALBUTEROL SULFATE [Suspect]
     Active Substance: ALBUTEROL SULFATE
     Dosage: 1 DF, QD
     Route: 065
  550. ALBUTEROL SULFATE [Suspect]
     Active Substance: ALBUTEROL SULFATE
     Dosage: 2 DF, QD
     Route: 065
  551. ALBUTEROL SULFATE [Suspect]
     Active Substance: ALBUTEROL SULFATE
     Indication: Eosinophilic granulomatosis with polyangiitis
     Route: 065
  552. FLUTICASONE PROPIONATE\SALMETEROL XINAFOATE [Suspect]
     Active Substance: FLUTICASONE PROPIONATE\SALMETEROL XINAFOATE
     Indication: Product used for unknown indication
     Route: 065
  553. SENNA [Suspect]
     Active Substance: SENNOSIDES
     Indication: Product used for unknown indication
     Route: 065
  554. SENNA LEAF [Suspect]
     Active Substance: SENNA LEAF
     Indication: Product used for unknown indication
     Route: 048
  555. CALCIUM SENNOSIDES [Suspect]
     Active Substance: SENNOSIDES
     Indication: Product used for unknown indication
     Route: 065
  556. CALCIUM SENNOSIDES [Suspect]
     Active Substance: SENNOSIDES
     Route: 065
  557. CALCIUM SENNOSIDES [Suspect]
     Active Substance: SENNOSIDES
     Route: 065
  558. SEPTRA [Suspect]
     Active Substance: SULFAMETHOXAZOLE\TRIMETHOPRIM
     Dosage: 3 DF, QW
     Route: 065
  559. SEPTRA [Suspect]
     Active Substance: SULFAMETHOXAZOLE\TRIMETHOPRIM
     Dosage: 3 DF, QW
     Route: 065
  560. SEPTRA [Suspect]
     Active Substance: SULFAMETHOXAZOLE\TRIMETHOPRIM
     Dosage: UNK, QW
     Route: 065
  561. SEPTRA [Suspect]
     Active Substance: SULFAMETHOXAZOLE\TRIMETHOPRIM
     Route: 065
  562. SEPTRA [Suspect]
     Active Substance: SULFAMETHOXAZOLE\TRIMETHOPRIM
     Route: 065
  563. SEPTRA [Suspect]
     Active Substance: SULFAMETHOXAZOLE\TRIMETHOPRIM
     Route: 065
  564. SEPTRA [Suspect]
     Active Substance: SULFAMETHOXAZOLE\TRIMETHOPRIM
     Route: 065
  565. SEPTRA [Suspect]
     Active Substance: SULFAMETHOXAZOLE\TRIMETHOPRIM
     Indication: Prophylaxis
     Route: 065
  566. SPIRIVA [Suspect]
     Active Substance: TIOTROPIUM BROMIDE MONOHYDRATE
     Dosage: 2 DF, QD
     Route: 065
  567. SPIRIVA [Suspect]
     Active Substance: TIOTROPIUM BROMIDE MONOHYDRATE
     Route: 065
  568. SPIRIVA [Suspect]
     Active Substance: TIOTROPIUM BROMIDE MONOHYDRATE
     Indication: Product used for unknown indication
     Route: 065
  569. SULFADIAZINE [Suspect]
     Active Substance: SULFADIAZINE
     Indication: Product used for unknown indication
     Route: 065
  570. SULFADIAZINE\TRIMETHOPRIM [Suspect]
     Active Substance: SULFADIAZINE\TRIMETHOPRIM
     Indication: Product used for unknown indication
     Route: 065
  571. SULFADIAZINE\TRIMETHOPRIM [Suspect]
     Active Substance: SULFADIAZINE\TRIMETHOPRIM
     Route: 065
  572. SULFADIAZINE\TRIMETHOPRIM [Suspect]
     Active Substance: SULFADIAZINE\TRIMETHOPRIM
     Route: 065
  573. SULFAMETHOXAZOLE AND TRIMETHOPRIM [Suspect]
     Active Substance: SULFAMETHOXAZOLE\TRIMETHOPRIM
     Dosage: 3 DF, Q3W
     Route: 065
  574. SULFAMETHOXAZOLE AND TRIMETHOPRIM [Suspect]
     Active Substance: SULFAMETHOXAZOLE\TRIMETHOPRIM
     Indication: Prophylaxis
     Route: 065
  575. SULFAMETHOXAZOLE AND TRIMETHOPRIM [Suspect]
     Active Substance: SULFAMETHOXAZOLE\TRIMETHOPRIM
     Route: 065
  576. SULFAMETHOXAZOLE AND TRIMETHOPRIM [Suspect]
     Active Substance: SULFAMETHOXAZOLE\TRIMETHOPRIM
     Route: 065
  577. SULFATRIM [Suspect]
     Active Substance: SULFAMETHOXAZOLE\TRIMETHOPRIM
     Indication: Product used for unknown indication
     Route: 065
  578. SULFATRIM [Suspect]
     Active Substance: SULFAMETHOXAZOLE\TRIMETHOPRIM
     Route: 065
  579. TAMSULOSIN [Suspect]
     Active Substance: TAMSULOSIN
     Indication: Product used for unknown indication
     Dosage: 1 DF, QD
     Route: 065
  580. TAMSULOSIN [Suspect]
     Active Substance: TAMSULOSIN
     Dosage: 1 DF, QD
     Route: 065
  581. TAMSULOSIN [Suspect]
     Active Substance: TAMSULOSIN
     Route: 065
  582. TAMSULOSIN [Suspect]
     Active Substance: TAMSULOSIN
     Route: 065
  583. TAMSULOSIN [Suspect]
     Active Substance: TAMSULOSIN
     Dosage: UNK, QD
     Route: 065
  584. TAMSULOSIN [Suspect]
     Active Substance: TAMSULOSIN
     Route: 065
  585. TAMSULOSIN HYDROCHLORIDE [Suspect]
     Active Substance: TAMSULOSIN HYDROCHLORIDE
     Indication: Product used for unknown indication
     Route: 065
  586. TAMSULOSIN HYDROCHLORIDE [Suspect]
     Active Substance: TAMSULOSIN HYDROCHLORIDE
     Route: 065
  587. TAMSULOSIN HYDROCHLORIDE [Suspect]
     Active Substance: TAMSULOSIN HYDROCHLORIDE
     Route: 065
  588. TAMSULOSIN HYDROCHLORIDE [Suspect]
     Active Substance: TAMSULOSIN HYDROCHLORIDE
     Route: 065
  589. TAMSULOSIN HYDROCHLORIDE [Suspect]
     Active Substance: TAMSULOSIN HYDROCHLORIDE
     Route: 065
  590. TAMSULOSIN HYDROCHLORIDE [Suspect]
     Active Substance: TAMSULOSIN HYDROCHLORIDE
     Dosage: UNK, QD
     Route: 065
  591. TAMSULOSIN HYDROCHLORIDE [Suspect]
     Active Substance: TAMSULOSIN HYDROCHLORIDE
     Route: 065
  592. TAMSULOSIN HYDROCHLORIDE [Suspect]
     Active Substance: TAMSULOSIN HYDROCHLORIDE
     Route: 065
  593. TAMSULOSIN HYDROCHLORIDE [Suspect]
     Active Substance: TAMSULOSIN HYDROCHLORIDE
     Route: 065
  594. PANTOPRAZOLE MAGNESIUM [Suspect]
     Active Substance: PANTOPRAZOLE MAGNESIUM
     Dosage: 1 DF, BID
     Route: 065
  595. PANTOPRAZOLE MAGNESIUM [Suspect]
     Active Substance: PANTOPRAZOLE MAGNESIUM
     Dosage: 1 DF, BID
     Route: 065
  596. PANTOPRAZOLE MAGNESIUM [Suspect]
     Active Substance: PANTOPRAZOLE MAGNESIUM
     Dosage: 1 DF, BID
     Route: 065
  597. PANTOPRAZOLE MAGNESIUM [Suspect]
     Active Substance: PANTOPRAZOLE MAGNESIUM
     Dosage: 2 MG, BID
     Route: 065
  598. PANTOPRAZOLE MAGNESIUM [Suspect]
     Active Substance: PANTOPRAZOLE MAGNESIUM
     Dosage: 2 DF, QD
     Route: 065
  599. PANTOPRAZOLE MAGNESIUM [Suspect]
     Active Substance: PANTOPRAZOLE MAGNESIUM
     Dosage: 2 DF, QD
     Route: 065
  600. PANTOPRAZOLE MAGNESIUM [Suspect]
     Active Substance: PANTOPRAZOLE MAGNESIUM
     Dosage: UNK, QD
     Route: 065
  601. PANTOPRAZOLE MAGNESIUM [Suspect]
     Active Substance: PANTOPRAZOLE MAGNESIUM
     Indication: Product used for unknown indication
     Dosage: UNK, BID
     Route: 065
  602. PANTOPRAZOLE MAGNESIUM [Suspect]
     Active Substance: PANTOPRAZOLE MAGNESIUM
     Dosage: UNK, BID
     Route: 065
  603. PANTOPRAZOLE MAGNESIUM [Suspect]
     Active Substance: PANTOPRAZOLE MAGNESIUM
     Dosage: UNK, BID
     Route: 065
  604. PANTOPRAZOLE MAGNESIUM [Suspect]
     Active Substance: PANTOPRAZOLE MAGNESIUM
     Route: 065
  605. PANTOPRAZOLE MAGNESIUM [Suspect]
     Active Substance: PANTOPRAZOLE MAGNESIUM
     Route: 065
  606. PANTOPRAZOLE MAGNESIUM [Suspect]
     Active Substance: PANTOPRAZOLE MAGNESIUM
     Route: 065
  607. THIAMINE [Suspect]
     Active Substance: THIAMINE
     Indication: Product used for unknown indication
     Route: 065
  608. TIAZAC [Suspect]
     Active Substance: DILTIAZEM HYDROCHLORIDE
     Route: 065
  609. TIAZAC [Suspect]
     Active Substance: DILTIAZEM HYDROCHLORIDE
     Indication: Product used for unknown indication
     Route: 065
  610. TIOTROPIUM BROMIDE [Suspect]
     Active Substance: TIOTROPIUM BROMIDE
     Indication: Product used for unknown indication
     Route: 065
  611. TRELEGY ELLIPTA [Suspect]
     Active Substance: FLUTICASONE FUROATE\UMECLIDINIUM BROMIDE\VILANTEROL TRIFENATATE
     Indication: Product used for unknown indication
     Dosage: 1 DF, QD
     Route: 055
  612. TRELEGY ELLIPTA [Suspect]
     Active Substance: FLUTICASONE FUROATE\UMECLIDINIUM BROMIDE\VILANTEROL TRIFENATATE
     Route: 065
  613. TRELEGY ELLIPTA [Suspect]
     Active Substance: FLUTICASONE FUROATE\UMECLIDINIUM BROMIDE\VILANTEROL TRIFENATATE
     Dosage: 750 MG, QD
     Route: 065
  614. TRELEGY ELLIPTA [Suspect]
     Active Substance: FLUTICASONE FUROATE\UMECLIDINIUM BROMIDE\VILANTEROL TRIFENATATE
     Dosage: UNK, QD
     Route: 065
  615. TRELEGY ELLIPTA [Suspect]
     Active Substance: FLUTICASONE FUROATE\UMECLIDINIUM BROMIDE\VILANTEROL TRIFENATATE
     Route: 065
  616. TUMS [Suspect]
     Active Substance: CALCIUM CARBONATE
     Indication: Product used for unknown indication
     Route: 065
  617. UMECLIDINIUM BROMIDE [Suspect]
     Active Substance: UMECLIDINIUM BROMIDE
     Indication: Product used for unknown indication
     Dosage: 1 DF, QD
     Route: 065
  618. UMECLIDINIUM BROMIDE [Suspect]
     Active Substance: UMECLIDINIUM BROMIDE
     Dosage: 1 DF, QD
     Route: 065
  619. UMECLIDINIUM BROMIDE [Suspect]
     Active Substance: UMECLIDINIUM BROMIDE
     Dosage: 1 DF, QD
     Route: 065
  620. UMECLIDINIUM BROMIDE [Suspect]
     Active Substance: UMECLIDINIUM BROMIDE
     Route: 065
  621. UMECLIDINIUM BROMIDE [Suspect]
     Active Substance: UMECLIDINIUM BROMIDE
     Dosage: UNK, QD
     Route: 065
  622. UMECLIDINIUM BROMIDE [Suspect]
     Active Substance: UMECLIDINIUM BROMIDE
     Route: 065
  623. UMECLIDINIUM BROMIDE\VILANTEROL TRIFENATATE [Suspect]
     Active Substance: UMECLIDINIUM BROMIDE\VILANTEROL TRIFENATATE
     Indication: Product used for unknown indication
     Dosage: 1 DF, QD
     Route: 065
  624. UMECLIDINIUM BROMIDE\VILANTEROL TRIFENATATE [Suspect]
     Active Substance: UMECLIDINIUM BROMIDE\VILANTEROL TRIFENATATE
     Dosage: 1 DF, QD
     Route: 065
  625. UMECLIDINIUM BROMIDE\VILANTEROL TRIFENATATE [Suspect]
     Active Substance: UMECLIDINIUM BROMIDE\VILANTEROL TRIFENATATE
     Route: 065
  626. UMECLIDINIUM BROMIDE\VILANTEROL TRIFENATATE [Suspect]
     Active Substance: UMECLIDINIUM BROMIDE\VILANTEROL TRIFENATATE
     Route: 065
  627. UMECLIDINIUM BROMIDE\VILANTEROL TRIFENATATE [Suspect]
     Active Substance: UMECLIDINIUM BROMIDE\VILANTEROL TRIFENATATE
     Route: 065
  628. VITAMIN C [Suspect]
     Active Substance: ASCORBIC ACID
     Indication: Product used for unknown indication
     Route: 065
  629. VILANTEROL TRIFENATATE [Suspect]
     Active Substance: VILANTEROL TRIFENATATE
     Indication: Product used for unknown indication
     Route: 065
  630. VITAMIN B COMPLEX [Suspect]
     Active Substance: CYANOCOBALAMIN\DEXPANTHENOL\NIACINAMIDE\PYRIDOXINE HYDROCHLORIDE\RIBOFLAVIN 5^-PHOSPHATE SODIUM\THIA
     Indication: Product used for unknown indication
     Route: 065
  631. VITAMIN D [Suspect]
     Active Substance: VITAMIN D NOS
     Indication: Product used for unknown indication
     Route: 065
  632. VITAMIN D3 [Suspect]
     Active Substance: CHOLECALCIFEROL
     Indication: Product used for unknown indication
     Route: 065
  633. VITAMIN D3 [Suspect]
     Active Substance: CHOLECALCIFEROL
     Route: 065
  634. VITAMIN D3 [Suspect]
     Active Substance: CHOLECALCIFEROL
     Route: 065
  635. ZENHALE [Suspect]
     Active Substance: FORMOTEROL FUMARATE\MOMETASONE FUROATE
     Indication: Product used for unknown indication
     Route: 065
  636. AMOXICILLIN\CLAVULANATE POTASSIUM [Concomitant]
     Active Substance: AMOXICILLIN\CLAVULANATE POTASSIUM
     Indication: Product used for unknown indication
     Route: 065
  637. CICLESONIDE [Concomitant]
     Active Substance: CICLESONIDE
     Dosage: 750 MG, QD
     Route: 065
  638. CICLESONIDE [Concomitant]
     Active Substance: CICLESONIDE
     Indication: Product used for unknown indication
     Route: 065
  639. DILTIAZEM [Concomitant]
     Active Substance: DILTIAZEM
     Indication: Product used for unknown indication
     Route: 065
  640. DOXAZOSIN MESYLATE [Concomitant]
     Active Substance: DOXAZOSIN MESYLATE
     Route: 065
  641. DOXAZOSIN MESYLATE [Concomitant]
     Active Substance: DOXAZOSIN MESYLATE
     Dosage: 750 MG, QD
     Route: 065
  642. DOXAZOSIN MESYLATE [Concomitant]
     Active Substance: DOXAZOSIN MESYLATE
     Indication: Product used for unknown indication
     Route: 065
  643. DUTASTERIDE [Concomitant]
     Active Substance: DUTASTERIDE
     Route: 065
  644. DUTASTERIDE [Concomitant]
     Active Substance: DUTASTERIDE
     Route: 065
  645. DUTASTERIDE [Concomitant]
     Active Substance: DUTASTERIDE
     Indication: Product used for unknown indication
     Route: 065
  646. LEVOTHYROXINE [Concomitant]
     Active Substance: LEVOTHYROXINE
     Indication: Product used for unknown indication
     Route: 065
  647. ESCITALOPRAM [Concomitant]
     Active Substance: ESCITALOPRAM OXALATE
     Route: 065
  648. ESCITALOPRAM [Concomitant]
     Active Substance: ESCITALOPRAM OXALATE
     Dosage: 750 MG, QD
     Route: 065
  649. ESCITALOPRAM [Concomitant]
     Active Substance: ESCITALOPRAM OXALATE
     Indication: Product used for unknown indication
     Route: 065
  650. HUMALOG [Concomitant]
     Active Substance: INSULIN LISPRO
     Indication: Product used for unknown indication
     Route: 065
  651. PENICILLIN V POTASSIUM [Concomitant]
     Active Substance: PENICILLIN V POTASSIUM
     Indication: Product used for unknown indication
     Route: 065
  652. PIOGLITAZONE HYDROCHLORIDE [Concomitant]
     Active Substance: PIOGLITAZONE HYDROCHLORIDE
     Indication: Product used for unknown indication
     Route: 065
  653. ROSUVASTATIN [Concomitant]
     Active Substance: ROSUVASTATIN
     Indication: Product used for unknown indication
     Route: 065
  654. SULFAMETHOXAZOLE\TRIMETHOPRIM [Concomitant]
     Active Substance: SULFAMETHOXAZOLE\TRIMETHOPRIM
     Indication: Product used for unknown indication
     Dosage: 3 DF, TID
     Route: 065
  655. ZENHALE [Concomitant]
     Active Substance: FORMOTEROL FUMARATE\MOMETASONE FUROATE
     Indication: Product used for unknown indication
     Dosage: 750 MG, QD
     Route: 065

REACTIONS (44)
  - Death [Fatal]
  - Total lung capacity abnormal [Fatal]
  - Loss of personal independence in daily activities [Fatal]
  - Eosinophilic granulomatosis with polyangiitis [Fatal]
  - Sleep disorder [Fatal]
  - Hospitalisation [Fatal]
  - Anxiety [Fatal]
  - Pulmonary alveolar haemorrhage [Fatal]
  - Skin exfoliation [Fatal]
  - Antineutrophil cytoplasmic antibody positive [Fatal]
  - Arteriosclerosis coronary artery [Unknown]
  - Capillaritis [Unknown]
  - Spirometry abnormal [Unknown]
  - Full blood count abnormal [Unknown]
  - Normochromic normocytic anaemia [Unknown]
  - Arteriosclerosis [Unknown]
  - Hypothyroidism [Unknown]
  - Conjunctivitis allergic [Unknown]
  - Dust allergy [Unknown]
  - Nodule [Unknown]
  - Hypoxia [Unknown]
  - Condition aggravated [Unknown]
  - Mite allergy [Unknown]
  - Mycotic allergy [Unknown]
  - Pulmonary embolism [Unknown]
  - Productive cough [Unknown]
  - Forced expiratory volume decreased [Unknown]
  - Thrombosis [Unknown]
  - Wheezing [Unknown]
  - Vasculitis [Unknown]
  - Respiratory symptom [Unknown]
  - Pulmonary vasculitis [Unknown]
  - Pulmonary fibrosis [Unknown]
  - Pulmonary alveolar haemorrhage [Unknown]
  - Pain in extremity [Unknown]
  - Neurological symptom [Unknown]
  - Obstructive airways disorder [Unknown]
  - Neuritis [Unknown]
  - Lung disorder [Unknown]
  - Haemoptysis [Unknown]
  - Dyspnoea [Unknown]
  - Asthma [Unknown]
  - Sleep disorder due to a general medical condition [Unknown]
  - Therapeutic product effect incomplete [Unknown]
